FAERS Safety Report 13302840 (Version 1)
Quarter: 2017Q1

REPORT INFORMATION
  Report Type: Spontaneous
  Country: HU (occurrence: HU)
  Receive Date: 20170307
  Receipt Date: 20170307
  Transmission Date: 20170428
  Serious: Yes (Hospitalization)
  Sender: FDA-Public Use
  Company Number: HU-KADMON PHARMACEUTICALS, LLC-KAD-201703-00213

PATIENT
  Age: 54 Year
  Sex: Male
  Weight: 79 kg

DRUGS (7)
  1. NEBIBETA 5 MG [Concomitant]
     Indication: HYPERTENSION
     Dosage: TABLET
     Route: 048
     Dates: start: 2013
  2. EXVIERA 250 MG [Suspect]
     Active Substance: DASABUVIR
     Indication: CHRONIC HEPATITIS C
     Dosage: FILM-COATED TABLET
     Route: 048
     Dates: start: 20160104, end: 20160328
  3. VIEKIRAX [Suspect]
     Active Substance: OMBITASVIR\PARITAPREVIR\RITONAVIR
     Indication: HEPATIC CIRRHOSIS
  4. EXVIERA 250 MG [Suspect]
     Active Substance: DASABUVIR
     Indication: HEPATIC CIRRHOSIS
  5. RIBAVIRIN 200 MG [Suspect]
     Active Substance: RIBAVIRIN
     Indication: CHRONIC HEPATITIS C
     Dosage: FILM-COATED TABLET
     Route: 048
     Dates: start: 20160104, end: 20160328
  6. RIBAVIRIN 200 MG [Suspect]
     Active Substance: RIBAVIRIN
     Indication: HEPATIC CIRRHOSIS
  7. VIEKIRAX [Suspect]
     Active Substance: OMBITASVIR\PARITAPREVIR\RITONAVIR
     Indication: CHRONIC HEPATITIS C
     Dosage: FILM-COATED TABLET, 12.5/75/50 MG; 2 TABLETS AT A TIME
     Route: 048
     Dates: start: 20160104, end: 20160328

REACTIONS (4)
  - Ascites [Unknown]
  - Hepatocellular carcinoma [Unknown]
  - Metastases to lymph nodes [Unknown]
  - Angiopathy [Unknown]

NARRATIVE: CASE EVENT DATE: 20161208
